FAERS Safety Report 21180435 (Version 2)
Quarter: 2022Q3

REPORT INFORMATION
  Report Type: Spontaneous
  Country: CO (occurrence: CO)
  Receive Date: 20220806
  Receipt Date: 20220906
  Transmission Date: 20221027
  Serious: Yes (Hospitalization)
  Sender: FDA-Public Use
  Company Number: CO-AMGEN-COLSP2022128960

PATIENT
  Age: 15 Year
  Sex: Male
  Weight: 89 kg

DRUGS (3)
  1. PEGFILGRASTIM [Suspect]
     Active Substance: PEGFILGRASTIM
     Indication: Neutropenia
     Dosage: 6 MILLIGRAM, (DAY 3)
     Route: 058
  2. DOXORUBICIN [Concomitant]
     Active Substance: DOXORUBICIN
     Dosage: 70 MILLIGRAM, (DAY 1-2)
     Route: 042
     Dates: start: 20220711, end: 20220712
  3. CISPLATIN [Concomitant]
     Active Substance: CISPLATIN
     Dosage: 110 MILLIGRAM, (DAY 1-2)
     Route: 042
     Dates: start: 20220711, end: 20220712

REACTIONS (6)
  - Cough [Recovered/Resolved]
  - Pallor [Recovered/Resolved]
  - Tachycardia [Recovered/Resolved]
  - Nausea [Recovered/Resolved]
  - Dizziness [Recovered/Resolved]
  - Hypotension [Recovered/Resolved]

NARRATIVE: CASE EVENT DATE: 20220714
